FAERS Safety Report 10327830 (Version 1)
Quarter: 2014Q3

REPORT INFORMATION
  Report Type: Report from Study
  Country: GB (occurrence: GB)
  Receive Date: 20140721
  Receipt Date: 20140721
  Transmission Date: 20150326
  Serious: Yes (Death)
  Sender: FDA-Public Use
  Company Number: GB-ROCHE-1436482

PATIENT
  Age: 40 Year
  Sex: Male

DRUGS (8)
  1. DEXAMETHASONE (ORAL) [Concomitant]
     Route: 048
     Dates: end: 20130325
  2. ONDANSETRON [Concomitant]
     Active Substance: ONDANSETRON
     Route: 048
     Dates: end: 20130325
  3. CAPECITABINE [Suspect]
     Active Substance: CAPECITABINE
     Indication: OESOPHAGEAL CARCINOMA
     Route: 048
     Dates: end: 20130325
  4. LOPERAMIDE [Concomitant]
     Active Substance: LOPERAMIDE
     Route: 048
     Dates: end: 20130325
  5. DEXAMETHASONE (ORAL) [Concomitant]
     Route: 048
     Dates: end: 20130325
  6. GLUCOSE 5% [Concomitant]
     Active Substance: DEXTROSE
     Route: 042
     Dates: end: 20130325
  7. DOMPERIDONE [Concomitant]
     Active Substance: DOMPERIDONE
     Route: 048
     Dates: end: 20130325
  8. OXALIPLATIN. [Concomitant]
     Active Substance: OXALIPLATIN
     Route: 042
     Dates: end: 20130325

REACTIONS (1)
  - Death [Fatal]

NARRATIVE: CASE EVENT DATE: 20130325
